FAERS Safety Report 5489042-5 (Version None)
Quarter: 2007Q4

REPORT INFORMATION
  Report Type: 
  Country: None (occurrence: None)
  Receive Date: 20071018
  Receipt Date: 20071012
  Transmission Date: 20080405
  Serious: Yes (Disabling)
  Sender: FDA-Public Use
  Company Number: PHNR2007AU01990

PATIENT
  Age: 63 Year
  Sex: Female

DRUGS (1)
  1. ZOLEDRONIC ACID [Suspect]
     Dosage: 4 MG, UNK
     Route: 042
     Dates: start: 20040824, end: 20061122

REACTIONS (1)
  - OSTEONECROSIS [None]
